FAERS Safety Report 7802940-X (Version None)
Quarter: 2011Q4

REPORT INFORMATION
  Report Type: 
  Country: None (occurrence: None)
  Receive Date: 20111007
  Receipt Date: 20111003
  Transmission Date: 20120403
  Serious: Yes (Other)
  Sender: FDA-Public Use
  Company Number: MX-B.I. PHARMACEUTICALS,INC./RIDGEFIELD-2011-MX-00240MX

PATIENT
  Sex: Male
  Weight: 80 kg

DRUGS (4)
  1. ARCOXIA [Concomitant]
     Indication: ANTIINFLAMMATORY THERAPY
     Dosage: 120 MG
     Route: 048
     Dates: start: 20110912
  2. TRAMADOL HCL [Concomitant]
     Indication: PAIN
     Route: 048
     Dates: start: 20110912, end: 20110917
  3. DABIGATRAN ETEXILATE [Suspect]
     Indication: PROPHYLAXIS
     Dosage: 2 CAPSULES DAILY
     Route: 048
     Dates: start: 20110912
  4. ELEQUINE [Concomitant]
     Indication: ANTIBIOTIC PROPHYLAXIS
     Dosage: 1 TABLET DAILY
     Route: 048
     Dates: start: 20110912, end: 20110920

REACTIONS (2)
  - DEEP VEIN THROMBOSIS [None]
  - OEDEMA [None]
